FAERS Safety Report 9769510 (Version 2)
Quarter: 2013Q4

REPORT INFORMATION
  Report Type: Spontaneous
  Country: US (occurrence: US)
  Receive Date: 20131218
  Receipt Date: 20131218
  Transmission Date: 20140711
  Serious: No
  Sender: FDA-Public Use
  Company Number: US-SHIONOGI, INC-2013000255

PATIENT
  Age: 60 Year
  Sex: Female
  Weight: 64.85 kg

DRUGS (1)
  1. OSPHENA [Suspect]
     Indication: DYSPAREUNIA
     Dosage: 60 MG QD FOR 5 WEEKS
     Route: 048
     Dates: start: 20130716

REACTIONS (2)
  - Poor quality sleep [Unknown]
  - Hot flush [Not Recovered/Not Resolved]
